FAERS Safety Report 4452182-3 (Version None)
Quarter: 2004Q3

REPORT INFORMATION
  Report Type: 
  Country: None (occurrence: None)
  Receive Date: 20040916
  Receipt Date: 20040916
  Transmission Date: 20050211
  Serious: Yes (Life-Threatening, Hospitalization)
  Sender: FDA-Public Use
  Company Number: None

PATIENT
  Sex: Male
  Weight: 24.1 kg

DRUGS (17)
  1. INTRALIPID 20% [Suspect]
     Indication: MALABSORPTION
     Dosage: 220ML IV IN TPN
     Route: 042
     Dates: start: 20040422, end: 20040915
  2. INTRALIPID 20% [Suspect]
  3. INTRALIPID 20% [Suspect]
  4. INTRALIPID 20% [Suspect]
  5. INTRALIPID 20% [Suspect]
  6. INTRALIPID 20% [Suspect]
  7. INTRALIPID 20% [Suspect]
  8. INTRALIPID 20% [Suspect]
  9. INTRALIPID 20% [Suspect]
  10. INTRALIPID 20% [Suspect]
  11. INTRALIPID 20% [Suspect]
  12. TPN [Concomitant]
  13. DEXTROSE 7% [Concomitant]
  14. TRAVASOL 10% [Concomitant]
  15. HYDRATION [Concomitant]
  16. NS [Concomitant]
  17. KACETATE [Concomitant]

REACTIONS (3)
  - CONDITION AGGRAVATED [None]
  - HAEMORRHAGE [None]
  - LIVER FUNCTION TEST ABNORMAL [None]
